FAERS Safety Report 8134585-9 (Version None)
Quarter: 2012Q1

REPORT INFORMATION
  Report Type: 
  Country: None (occurrence: None)
  Receive Date: 20120214
  Receipt Date: 20120201
  Transmission Date: 20120608
  Serious: Yes (Hospitalization)
  Sender: FDA-Public Use
  Company Number: DK-UCBSA-043544

PATIENT
  Age: 43 Year
  Sex: Female

DRUGS (2)
  1. METHOTREXATE [Concomitant]
     Indication: ANKYLOSING SPONDYLITIS
     Dosage: UNKNOWN DOSE
     Route: 048
  2. CIMZIA [Suspect]
     Indication: ANKYLOSING SPONDYLITIS
     Dosage: 400, ONE DOSE
     Route: 058
     Dates: start: 20110922, end: 20110922

REACTIONS (3)
  - ANAPHYLACTIC REACTION [None]
  - ADVERSE DRUG REACTION [None]
  - RESPIRATORY DISTRESS [None]
